FAERS Safety Report 6146976-6 (Version None)
Quarter: 2009Q2

REPORT INFORMATION
  Report Type: 
  Country: None (occurrence: None)
  Receive Date: 20090407
  Receipt Date: 20090326
  Transmission Date: 20091009
  Serious: Yes (Hospitalization, Other)
  Sender: FDA-Public Use
  Company Number: US-ELI_LILLY_AND_COMPANY-US200903006768

PATIENT
  Sex: Male

DRUGS (1)
  1. SYMBYAX [Suspect]
     Indication: BIPOLAR DISORDER
     Dosage: UNK, UNK
     Dates: start: 20090114, end: 20090121

REACTIONS (7)
  - ATRIAL FIBRILLATION [None]
  - CARDIOMYOPATHY [None]
  - DYSURIA [None]
  - FEELING ABNORMAL [None]
  - HEART RATE INCREASED [None]
  - MIGRAINE [None]
  - THROMBOSIS [None]
